FAERS Safety Report 9824717 (Version 2)
Quarter: 2014Q1

REPORT INFORMATION
  Report Type: Spontaneous
  Country: US (occurrence: US)
  Receive Date: 20140117
  Receipt Date: 20140130
  Transmission Date: 20141002
  Serious: Yes (Death)
  Sender: FDA-Public Use
  Company Number: 2014SP000208

PATIENT
  Age: 37 Year
  Sex: Male

DRUGS (4)
  1. HALOPERIDOL DECANOATE [Suspect]
     Indication: PRODUCT USED FOR UNKNOWN INDICATION
  2. VALPROIC ACID [Suspect]
     Indication: PRODUCT USED FOR UNKNOWN INDICATION
  3. LORAZEPAM [Suspect]
     Indication: PRODUCT USED FOR UNKNOWN INDICATION
  4. CLOZAPINE [Suspect]
     Indication: PRODUCT USED FOR UNKNOWN INDICATION

REACTIONS (1)
  - Death [Fatal]
